FAERS Safety Report 5675923-6 (Version None)
Quarter: 2008Q1

REPORT INFORMATION
  Report Type: 
  Country: None (occurrence: None)
  Receive Date: 20080321
  Receipt Date: 20080311
  Transmission Date: 20080703
  Serious: Yes (Other)
  Sender: FDA-Public Use
  Company Number: B0512628A

PATIENT
  Sex: Female

DRUGS (3)
  1. WELLVONE [Suspect]
     Indication: PNEUMONIA HERPES VIRAL
     Route: 065
  2. VALACYCLOVIR [Concomitant]
     Indication: PNEUMONIA HERPES VIRAL
     Route: 065
     Dates: start: 20061201
  3. TEGELINE [Concomitant]
     Indication: PNEUMONIA HERPES VIRAL
     Route: 065
     Dates: start: 20061201

REACTIONS (3)
  - ANAEMIA [None]
  - HAEMOLYSIS [None]
  - OFF LABEL USE [None]
